FAERS Safety Report 9147969 (Version 2)
Quarter: 2013Q1

REPORT INFORMATION
  Report Type: Spontaneous
  Country: US (occurrence: US)
  Receive Date: 20130304
  Receipt Date: 20130312
  Transmission Date: 20140127
  Serious: Yes (Other)
  Sender: FDA-Public Use
  Company Number: US-RB-050327-13

PATIENT
  Age: 38 Year
  Sex: Female

DRUGS (7)
  1. MUCINEX DM MAXIMUM STRENGTH (GUAIFENESIN) [Suspect]
     Indication: PRODUCT USED FOR UNKNOWN INDICATION
     Dosage: LAST TOOK ON 16-FEB-2103
     Route: 048
     Dates: start: 20130208
  2. MUCINEX DM MAXIMUM STRENGTH (DEXTROMETHORPHAN HYDROBROMIDE) [Suspect]
  3. TUSSIN [Concomitant]
     Indication: DEPRESSION
  4. ABILIFY [Concomitant]
     Indication: DEPRESSION
  5. LITHIUM [Concomitant]
     Indication: MENTAL DISORDER
  6. LEXAPRO [Concomitant]
     Indication: MENTAL DISORDER
  7. BENZATROPINE [Concomitant]
     Indication: TREMOR

REACTIONS (5)
  - Depression [Recovered/Resolved]
  - Memory impairment [Recovered/Resolved]
  - Crying [Recovered/Resolved]
  - Lethargy [Recovered/Resolved]
  - Incorrect drug administration duration [Recovered/Resolved]
